FAERS Safety Report 9293228 (Version 2)
Quarter: 2013Q3

REPORT INFORMATION
  Report Type: Report from Study
  Country: BR (occurrence: BR)
  Receive Date: 20130516
  Receipt Date: 20130731
  Transmission Date: 20140515
  Serious: Yes (Life-Threatening, Hospitalization)
  Sender: FDA-Public Use
  Company Number: BR-ELI_LILLY_AND_COMPANY-BR201305003068

PATIENT
  Age: 93 Year
  Sex: Female
  Weight: 42 kg

DRUGS (8)
  1. TERIPARATIDE [Suspect]
     Indication: OSTEOPOROSIS
     Dosage: 20 UG, QD
     Route: 058
     Dates: start: 201212
  2. AMILORID [Concomitant]
     Indication: HYPERTENSION
     Dosage: UNK, QD
     Route: 065
  3. GLIMEPIRID [Concomitant]
     Indication: DIABETES MELLITUS
     Dosage: 4 MG, QD
     Route: 065
  4. SINVASTATINA [Concomitant]
     Indication: BLOOD CHOLESTEROL
     Dosage: 10 MG, QD
     Route: 065
  5. GINKGO BILOBA [Concomitant]
     Dosage: 80 MG, QD
     Route: 065
  6. ALENDRONATE SODIUM W/COLECALCIFEROL [Concomitant]
     Dosage: 70 MG, WEEKLY (1/W)
     Route: 065
  7. BENERVA [Concomitant]
     Dosage: 300 MG, QD
     Route: 065
  8. CLONAZEPAM [Concomitant]
     Indication: INSOMNIA
     Dosage: 1 MG, PRN
     Route: 065

REACTIONS (6)
  - Heart rate decreased [Recovered/Resolved]
  - Loss of consciousness [Recovered/Resolved]
  - Peripheral coldness [Recovered/Resolved]
  - Generalised oedema [Recovered/Resolved]
  - Urinary tract infection [Unknown]
  - Blood pressure abnormal [Recovered/Resolved]
